FAERS Safety Report 6189958-0 (Version None)
Quarter: 2009Q2

REPORT INFORMATION
  Report Type: 
  Country: None (occurrence: None)
  Receive Date: 20090512
  Receipt Date: 20090512
  Transmission Date: 20091009
  Serious: Yes (Hospitalization)
  Sender: FDA-Public Use
  Company Number: None

PATIENT
  Age: 66 Year
  Sex: Female
  Weight: 72.5755 kg

DRUGS (2)
  1. LEXISCAN [Suspect]
     Indication: CARDIAC STRESS TEST
     Dosage: 0.4MG 1 TIME DOSE IV BOLUS ONLY ONE TIME DOSE
     Route: 040
  2. LEXISCAN [Suspect]
     Indication: CHEST PAIN
     Dosage: 0.4MG 1 TIME DOSE IV BOLUS ONLY ONE TIME DOSE
     Route: 040

REACTIONS (3)
  - BRADYCARDIA [None]
  - MENTAL STATUS CHANGES [None]
  - RESPIRATORY DISORDER [None]
